FAERS Safety Report 5382024-3 (Version None)
Quarter: 2007Q3

REPORT INFORMATION
  Report Type: 
  Country: None (occurrence: None)
  Receive Date: 20070705
  Receipt Date: 20070621
  Transmission Date: 20080115
  Serious: Yes (Other)
  Sender: FDA-Public Use
  Company Number: 13799424

PATIENT
  Sex: Female

DRUGS (2)
  1. EMSAM [Suspect]
     Indication: DEPRESSION
     Dosage: 6 MILLIGRAM, 24 HOUR TD
     Route: 062
     Dates: start: 20070412
  2. SEROQUEL [Concomitant]

REACTIONS (2)
  - HYPERTENSIVE CRISIS [None]
  - NAUSEA [None]
